FAERS Safety Report 14196333 (Version 5)
Quarter: 2018Q2

REPORT INFORMATION
  Report Type: Report from Study
  Country: US (occurrence: US)
  Receive Date: 20171116
  Receipt Date: 20180529
  Transmission Date: 20180711
  Serious: Yes (Death, Hospitalization)
  Sender: FDA-Public Use
  Company Number: US-JNJFOC-20171117988

PATIENT
  Age: 71 Year
  Sex: Female
  Weight: 46 kg

DRUGS (12)
  1. IMBRUVICA [Suspect]
     Active Substance: IBRUTINIB
     Indication: CHRONIC LYMPHOCYTIC LEUKAEMIA
     Route: 048
     Dates: start: 20170718, end: 20170824
  2. HCTZ [Concomitant]
     Active Substance: HYDROCHLOROTHIAZIDE
  3. SIMVASTATIN. [Concomitant]
     Active Substance: SIMVASTATIN
  4. LYSINE [Concomitant]
     Active Substance: LYSINE
  5. PROZAC [Concomitant]
     Active Substance: FLUOXETINE HYDROCHLORIDE
  6. FOSAMAX [Concomitant]
     Active Substance: ALENDRONATE SODIUM
  7. VITAMIN D3 [Concomitant]
     Active Substance: CHOLECALCIFEROL
  8. PRIVIGEN [Concomitant]
     Active Substance: HUMAN IMMUNOGLOBULIN G
  9. IPRATROPIUM BROMIDE. [Concomitant]
     Active Substance: IPRATROPIUM BROMIDE
  10. IMBRUVICA [Suspect]
     Active Substance: IBRUTINIB
     Indication: CHRONIC LYMPHOCYTIC LEUKAEMIA
     Route: 048
     Dates: start: 20170920, end: 20171023
  11. MULTIVITAMINS [Concomitant]
     Active Substance: VITAMINS
  12. PEPCID [Concomitant]
     Active Substance: FAMOTIDINE

REACTIONS (10)
  - Coma [Not Recovered/Not Resolved]
  - Ecchymosis [Unknown]
  - Contusion [Unknown]
  - Periorbital haemorrhage [Unknown]
  - Subdural haematoma [Fatal]
  - Subarachnoid haemorrhage [Unknown]
  - Carpal tunnel syndrome [Unknown]
  - Inflammation [Recovered/Resolved]
  - Intraventricular haemorrhage [Fatal]
  - Fall [Not Recovered/Not Resolved]

NARRATIVE: CASE EVENT DATE: 20170824
